FAERS Safety Report 9196950 (Version 1)
Quarter: 2013Q1

REPORT INFORMATION
  Report Type: Spontaneous
  Country: US (occurrence: US)
  Receive Date: 20130328
  Receipt Date: 20130328
  Transmission Date: 20140127
  Serious: Yes (Other)
  Sender: FDA-Public Use
  Company Number: US-ASTRAZENECA-2013SE18383

PATIENT
  Age: 73 Year
  Sex: Male

DRUGS (1)
  1. BRILINTA [Suspect]
     Indication: DRESSLER^S SYNDROME
     Dosage: LOADING DOSE
     Route: 048

REACTIONS (2)
  - Platelet count decreased [Unknown]
  - Coronary artery dissection [Unknown]
